FAERS Safety Report 14147960 (Version 4)
Quarter: 2017Q4

REPORT INFORMATION
  Report Type: Spontaneous
  Country: US (occurrence: US)
  Receive Date: 20171031
  Receipt Date: 20171114
  Transmission Date: 20180321
  Serious: Yes (Hospitalization, Other)
  Sender: FDA-Public Use
  Company Number: PHHY2017US157308

PATIENT
  Age: 22 Month
  Sex: Female

DRUGS (3)
  1. CICLOSPORIN [Suspect]
     Active Substance: CYCLOSPORINE
     Indication: HISTIOCYTOSIS HAEMATOPHAGIC
     Dosage: 8 MG/KG, QD
     Route: 065
  2. ANAKINRA [Suspect]
     Active Substance: ANAKINRA
     Indication: HISTIOCYTOSIS HAEMATOPHAGIC
     Dosage: 100 MG, BID
     Route: 065
  3. PREDNISOLONE. [Suspect]
     Active Substance: PREDNISOLONE
     Indication: HISTIOCYTOSIS HAEMATOPHAGIC
     Dosage: 0.6 MG/KG, QD
     Route: 065

REACTIONS (18)
  - Inflammation [Unknown]
  - Alveolar proteinosis [Unknown]
  - Respiratory syncytial virus infection [Unknown]
  - Histiocytosis haematophagic [Unknown]
  - Interstitial lung disease [Unknown]
  - Tracheomalacia [Unknown]
  - Snoring [Unknown]
  - Lung disorder [Unknown]
  - Alveolar lung disease [Unknown]
  - Hypoxia [Unknown]
  - Sleep apnoea syndrome [Unknown]
  - Still^s disease [Unknown]
  - Laryngomalacia [Unknown]
  - Tachypnoea [Unknown]
  - Hyperplasia [Unknown]
  - Product use in unapproved indication [Unknown]
  - Cholesterol granuloma [Unknown]
  - Pleural effusion [Unknown]
